FAERS Safety Report 4353425-7 (Version None)
Quarter: 2004Q2

REPORT INFORMATION
  Report Type: 
  Country: None (occurrence: None)
  Receive Date: 20040430
  Receipt Date: 20040420
  Transmission Date: 20050107
  Serious: Yes (Hospitalization)
  Sender: FDA-Public Use
  Company Number: US-JNJFOC-20031205427

PATIENT
  Age: 73 Year
  Sex: Female

DRUGS (21)
  1. REMICADE [Suspect]
     Indication: CROHN'S DISEASE
     Dosage: 5 MG/KG
     Dates: start: 20031120
  2. METHOTREXATE SODIUM [Concomitant]
  3. PREDNISONE [Concomitant]
  4. PREMARIN [Concomitant]
  5. ALLOPURINOL [Concomitant]
  6. AVANDIA [Concomitant]
  7. GLUCOTROL [Concomitant]
  8. ENALAPRIL / HCTZ (VASERETIC) [Concomitant]
  9. ASACOL [Concomitant]
  10. PRILOSEC [Concomitant]
  11. TOPROL (METOPROLOL SUCCINATE) [Concomitant]
  12. UNASYN (UNACID) [Concomitant]
  13. ZITHROMAX [Concomitant]
  14. TOPROL-XL [Concomitant]
  15. PROTONIX [Concomitant]
  16. ZINC SULFATE (ZINC SULFATE) [Concomitant]
  17. LASIX [Concomitant]
  18. ZYRTEC [Concomitant]
  19. OSCAL (CALCIUM CARBONATE) [Concomitant]
  20. ATROVENT [Concomitant]
  21. ALBUTEROL [Concomitant]

REACTIONS (22)
  - ASTHENIA [None]
  - CENTRAL NERVOUS SYSTEM INFECTION [None]
  - DEHYDRATION [None]
  - DEPRESSION [None]
  - DIZZINESS [None]
  - ECCHYMOSIS [None]
  - EMPYEMA [None]
  - GENERAL PHYSICAL HEALTH DETERIORATION [None]
  - HAEMODIALYSIS [None]
  - HYPOTENSION [None]
  - LUNG NEOPLASM [None]
  - MARKEDLY REDUCED DIETARY INTAKE [None]
  - NAUSEA [None]
  - NOCARDIOSIS [None]
  - ODYNOPHAGIA [None]
  - PLEURAL EFFUSION [None]
  - PNEUMONIA [None]
  - RENAL FAILURE [None]
  - RENAL TUBULAR NECROSIS [None]
  - SEPSIS [None]
  - TACHYCARDIA [None]
  - WEIGHT DECREASED [None]
